FAERS Safety Report 7484037-4 (Version None)
Quarter: 2011Q2

REPORT INFORMATION
  Report Type: 
  Country: None (occurrence: None)
  Receive Date: 20110517
  Receipt Date: 20110502
  Transmission Date: 20111010
  Serious: Yes (Other)
  Sender: FDA-Public Use
  Company Number: IN-SANOFI-AVENTIS-2011SA025638

PATIENT
  Age: 48 Year
  Sex: Male

DRUGS (3)
  1. MEPERIDINE HCL [Suspect]
     Route: 065
  2. PENTAZOCINE LACTATE [Suspect]
     Dosage: USE TO TAKE SOME TIMES 10 INJECTIONS, AROUND 300 MG PER DAY
     Route: 065
  3. MORPHINE SULFATE [Suspect]
     Route: 065

REACTIONS (6)
  - MUSCLE CONTRACTURE [None]
  - TORTICOLLIS [None]
  - DYSTONIA [None]
  - ANXIETY [None]
  - DRUG WITHDRAWAL SYNDROME [None]
  - DRUG DEPENDENCE [None]
